FAERS Safety Report 13109670 (Version 1)
Quarter: 2017Q1

REPORT INFORMATION
  Report Type: Spontaneous
  Country: US (occurrence: CA)
  Receive Date: 20170112
  Receipt Date: 20170112
  Transmission Date: 20170428
  Serious: Yes (Other)
  Sender: FDA-Public Use
  Company Number: CA-ASTRAZENECA-2016SE70296

PATIENT
  Sex: Male

DRUGS (7)
  1. PLAQUENIL [Concomitant]
     Active Substance: HYDROXYCHLOROQUINE SULFATE
  2. REMICADE [Concomitant]
     Active Substance: INFLIXIMAB
  3. ACTEMRA [Concomitant]
     Active Substance: TOCILIZUMAB
     Dates: end: 2013
  4. ENBREL [Concomitant]
     Active Substance: ETANERCEPT
     Indication: RHEUMATOID ARTHRITIS
     Route: 058
  5. CRESTOR [Suspect]
     Active Substance: ROSUVASTATIN CALCIUM
     Route: 048
  6. ARAVA [Concomitant]
     Active Substance: LEFLUNOMIDE
  7. GOLD [Concomitant]
     Active Substance: GOLD

REACTIONS (11)
  - Arthropathy [Unknown]
  - Laceration [Unknown]
  - Bone erosion [Unknown]
  - Joint swelling [Unknown]
  - Red blood cell sedimentation rate abnormal [Unknown]
  - Diabetes mellitus [Unknown]
  - Drug hypersensitivity [Unknown]
  - Peripheral swelling [Unknown]
  - Erythema [Unknown]
  - Skin ulcer [Recovering/Resolving]
  - Investigation abnormal [Unknown]
